FAERS Safety Report 7216871-X (Version None)
Quarter: 2010Q4

REPORT INFORMATION
  Report Type: 
  Country: None (occurrence: None)
  Receive Date: 20101229
  Receipt Date: 20101220
  Transmission Date: 20110411
  Serious: Yes (Hospitalization)
  Sender: FDA-Public Use
  Company Number: 2010SP065684

PATIENT
  Age: 50 Year
  Sex: Male
  Weight: 123 kg

DRUGS (23)
  1. REMERON [Suspect]
     Indication: MAJOR DEPRESSION
     Dosage: 15 MG; QD;PO, 30 MG; QD;PO, 45 MG; QD; PO
     Route: 048
     Dates: start: 20101109
  2. REMERON [Suspect]
     Indication: SCHIZOAFFECTIVE DISORDER
     Dosage: 15 MG; QD;PO, 30 MG; QD;PO, 45 MG; QD; PO
     Route: 048
     Dates: start: 20101109
  3. REMERON [Suspect]
     Indication: MAJOR DEPRESSION
     Dosage: 15 MG; QD;PO, 30 MG; QD;PO, 45 MG; QD; PO
     Route: 048
     Dates: start: 20101112
  4. REMERON [Suspect]
     Indication: SCHIZOAFFECTIVE DISORDER
     Dosage: 15 MG; QD;PO, 30 MG; QD;PO, 45 MG; QD; PO
     Route: 048
     Dates: start: 20101112
  5. REMERON [Suspect]
     Indication: MAJOR DEPRESSION
     Dosage: 15 MG; QD;PO, 30 MG; QD;PO, 45 MG; QD; PO
     Route: 048
     Dates: start: 20101119
  6. REMERON [Suspect]
     Indication: SCHIZOAFFECTIVE DISORDER
     Dosage: 15 MG; QD;PO, 30 MG; QD;PO, 45 MG; QD; PO
     Route: 048
     Dates: start: 20101119
  7. SEROQUEL XR [Suspect]
     Indication: MAJOR DEPRESSION
     Dosage: 300 MG; QD; PO, 500 MG; QD; PO, 600 MG; QD; PO, 200 MG; QD
     Route: 048
     Dates: start: 20101103
  8. SEROQUEL XR [Suspect]
     Indication: SCHIZOAFFECTIVE DISORDER
     Dosage: 300 MG; QD; PO, 500 MG; QD; PO, 600 MG; QD; PO, 200 MG; QD
     Route: 048
     Dates: start: 20101103
  9. SEROQUEL XR [Suspect]
     Indication: MAJOR DEPRESSION
     Dosage: 300 MG; QD; PO, 500 MG; QD; PO, 600 MG; QD; PO, 200 MG; QD
     Route: 048
     Dates: start: 20101104
  10. SEROQUEL XR [Suspect]
     Indication: SCHIZOAFFECTIVE DISORDER
     Dosage: 300 MG; QD; PO, 500 MG; QD; PO, 600 MG; QD; PO, 200 MG; QD
     Route: 048
     Dates: start: 20101104
  11. SEROQUEL XR [Suspect]
     Indication: MAJOR DEPRESSION
     Dosage: 300 MG; QD; PO, 500 MG; QD; PO, 600 MG; QD; PO, 200 MG; QD
     Route: 048
     Dates: start: 20101120
  12. SEROQUEL XR [Suspect]
     Indication: SCHIZOAFFECTIVE DISORDER
     Dosage: 300 MG; QD; PO, 500 MG; QD; PO, 600 MG; QD; PO, 200 MG; QD
     Route: 048
     Dates: start: 20101120
  13. SEROQUEL XR [Suspect]
     Indication: MAJOR DEPRESSION
     Dosage: 300 MG; QD; PO, 500 MG; QD; PO, 600 MG; QD; PO, 200 MG; QD
     Route: 048
     Dates: start: 20101124
  14. SEROQUEL XR [Suspect]
     Indication: SCHIZOAFFECTIVE DISORDER
     Dosage: 300 MG; QD; PO, 500 MG; QD; PO, 600 MG; QD; PO, 200 MG; QD
     Route: 048
     Dates: start: 20101124
  15. CIPRALEX (ESCTIALOPRAM) [Suspect]
     Indication: MAJOR DEPRESSION
     Dosage: 20 MG; QD; PO
     Route: 048
     Dates: start: 20100101
  16. CIPRALEX (ESCTIALOPRAM) [Suspect]
     Indication: SCHIZOAFFECTIVE DISORDER
     Dosage: 20 MG; QD; PO
     Route: 048
     Dates: start: 20100101
  17. ANXIOLT (OXAZEPAM) [Suspect]
     Indication: PRODUCT USED FOR UNKNOWN INDICATION
     Dosage: 15 MG; QID; PO, 15 MG; BID; PO
     Route: 048
     Dates: start: 20101103
  18. ANXIOLT (OXAZEPAM) [Suspect]
     Indication: PRODUCT USED FOR UNKNOWN INDICATION
     Dosage: 15 MG; QID; PO, 15 MG; BID; PO
     Route: 048
     Dates: start: 20101119
  19. CAMPRAL [Concomitant]
  20. BECOZYME (PYRIDOXINE HYDROCHLORIDE/BIOTIN/CYANOCOBALAMIN/RIBOFLAVIN) [Concomitant]
  21. BENERVA [Concomitant]
  22. FERR0 GRADUMET [Concomitant]
  23. ZYLORIC [Concomitant]

REACTIONS (3)
  - CONVULSIVE THRESHOLD LOWERED [None]
  - DRUG INTERACTION [None]
  - GRAND MAL CONVULSION [None]
